FAERS Safety Report 7472615-8 (Version None)
Quarter: 2011Q2

REPORT INFORMATION
  Report Type: 
  Country: None (occurrence: None)
  Receive Date: 20110511
  Receipt Date: 20110510
  Transmission Date: 20111010
  Serious: Yes (Hospitalization)
  Sender: FDA-Public Use
  Company Number: US-BRISTOL-MYERS SQUIBB COMPANY-15456460

PATIENT
  Age: 74 Year
  Sex: Male

DRUGS (8)
  1. VITAMIN D [Concomitant]
     Dosage: 1DF=50000 UNITS(THURSDAYS)
  2. PREDNISONE TAB [Concomitant]
     Route: 048
  3. SIMVASTATIN [Concomitant]
     Dosage: AT BED TIME
     Route: 048
  4. YERVOY [Suspect]
     Indication: MALIGNANT MELANOMA
     Dosage: NO OF COURSE:1 LAST DOSE:05NOV2010
     Route: 042
     Dates: start: 20101105
  5. LISINOPRIL [Concomitant]
     Route: 048
  6. FLUTICASONE PROPIONATE [Concomitant]
  7. SYMBICORT [Concomitant]
     Dosage: SYMBICORT 40MG;1DF=1 PUFF
  8. COUMADIN [Concomitant]
     Dosage: JUST SWITCHED ON DAY ADMISSION WAS 5MG ORAL DAILY
     Route: 048

REACTIONS (2)
  - DYSPNOEA [None]
  - DIARRHOEA [None]
